FAERS Safety Report 18187215 (Version 1)
Quarter: 2020Q3

REPORT INFORMATION
  Report Type: Spontaneous
  Country: US (occurrence: US)
  Receive Date: 20200824
  Receipt Date: 20200824
  Transmission Date: 20201103
  Serious: No
  Sender: FDA-Public Use
  Company Number: US-CELLTRION INC.-2020US017948

PATIENT

DRUGS (1)
  1. INFLECTRA [Suspect]
     Active Substance: INFLIXIMAB-DYYB
     Indication: HIDRADENITIS
     Dosage: 1200 MG EVERY 8 WEEKS
     Route: 042

REACTIONS (4)
  - Myalgia [Recovered/Resolved]
  - Product use in unapproved indication [Unknown]
  - Arthralgia [Recovered/Resolved]
  - Fatigue [Recovered/Resolved]

NARRATIVE: CASE EVENT DATE: 20200330
